FAERS Safety Report 6030281-2 (Version None)
Quarter: 2009Q1

REPORT INFORMATION
  Report Type: 
  Country: None (occurrence: None)
  Receive Date: 20090105
  Receipt Date: 20090105
  Transmission Date: 20090719
  Serious: Yes (Hospitalization)
  Sender: FDA-Public Use
  Company Number: None

PATIENT
  Age: 49 Year
  Sex: Female
  Weight: 78.0187 kg

DRUGS (2)
  1. TRAMADOL HCL [Suspect]
     Indication: BACK PAIN
     Dosage: 1 TAB EVERY 6 HRS AS NEE PO, TAKE 1X -JAN 2 2009
     Route: 048
     Dates: start: 20080102, end: 20080102
  2. TRAMADOL HCL [Suspect]
     Indication: MYALGIA
     Dosage: 1 TAB EVERY 6 HRS AS NEE PO, TAKE 1X -JAN 2 2009
     Route: 048
     Dates: start: 20080102, end: 20080102

REACTIONS (4)
  - DIARRHOEA [None]
  - HAEMATEMESIS [None]
  - NAUSEA [None]
  - VOMITING [None]
